FAERS Safety Report 4338756-9 (Version None)
Quarter: 2004Q2

REPORT INFORMATION
  Report Type: 
  Country: None (occurrence: None)
  Receive Date: 20040409
  Receipt Date: 20040402
  Transmission Date: 20050107
  Serious: Yes (Other)
  Sender: FDA-Public Use
  Company Number: 2004205164US

PATIENT
  Age: 58 Year
  Sex: Female

DRUGS (8)
  1. BEXTRA [Suspect]
     Indication: OSTEOARTHRITIS
     Dosage: 20 MG, QD, ORAL
     Route: 048
     Dates: start: 20030901, end: 20040301
  2. LIPITOR [Concomitant]
  3. ASPIRIN [Concomitant]
  4. VITAMIN E [Concomitant]
  5. GLUCOSAMINE CHONDROITIN [Concomitant]
  6. OMEGA 3 FISH OIL [Concomitant]
  7. CALCIUM [Concomitant]
  8. MULTIVITAMINS (ERGOCALCIFEROL, RETINOL, PANTHENOL) [Concomitant]

REACTIONS (1)
  - VENTRICULAR HYPERTROPHY [None]
